FAERS Safety Report 4948498-4 (Version None)
Quarter: 2006Q1

REPORT INFORMATION
  Report Type: 
  Country: None (occurrence: None)
  Receive Date: 20060320
  Receipt Date: 20051003
  Transmission Date: 20060701
  Serious: Yes (Death, Hospitalization, Disabling)
  Sender: FDA-Public Use
  Company Number: US-MERCK-0510USA02543

PATIENT
  Age: 47 Year
  Sex: Female

DRUGS (1)
  1. VIOXX [Suspect]
     Indication: ARTHRITIS
     Route: 048
     Dates: start: 20030101

REACTIONS (22)
  - ANAEMIA [None]
  - ANOREXIA [None]
  - AZOTAEMIA [None]
  - BREATHING-RELATED SLEEP DISORDER [None]
  - BRONCHOSPASM [None]
  - CARDIAC DISORDER [None]
  - CARDIAC FAILURE CONGESTIVE [None]
  - CHEST PAIN [None]
  - DEATH [None]
  - DYSPNOEA [None]
  - FLUID OVERLOAD [None]
  - HEADACHE [None]
  - LUNG DISORDER [None]
  - PANCREATIC CYST [None]
  - PERICARDIAL EFFUSION [None]
  - PNEUMONIA [None]
  - RENAL DISORDER [None]
  - RENAL FAILURE ACUTE [None]
  - RENAL FAILURE CHRONIC [None]
  - SCLERODERMA [None]
  - SYSTEMIC LUPUS ERYTHEMATOSUS [None]
  - WEIGHT DECREASED [None]
